FAERS Safety Report 9727651 (Version 3)
Quarter: 2013Q4

REPORT INFORMATION
  Report Type: Spontaneous
  Country: TR (occurrence: TR)
  Receive Date: 20131203
  Receipt Date: 20131213
  Transmission Date: 20140711
  Serious: Yes (Hospitalization, Other)
  Sender: FDA-Public Use
  Company Number: PHHY2013TR138665

PATIENT
  Age: 22 Year
  Sex: Female
  Weight: 50 kg

DRUGS (4)
  1. CO-DIOVAN [Suspect]
     Dosage: 28 DF, (160 MG VALS, 12.5 MG HCT)
     Dates: start: 20131127
  2. METFORMIN [Suspect]
     Dosage: 30 DF, (1 G) TABLET
     Dates: start: 20131127
  3. ATORVASTATIN [Suspect]
     Dosage: 30 DF, UNK(20 MG)
     Dates: start: 20131127
  4. ECOPIRIN [Suspect]
     Dosage: 20 DF, (100 MG) UKN
     Dates: start: 20131127

REACTIONS (1)
  - Suicide attempt [Recovered/Resolved]
